FAERS Safety Report 20926317 (Version 2)
Quarter: 2022Q2

REPORT INFORMATION
  Report Type: Report from Study
  Country: US (occurrence: US)
  Receive Date: 20220607
  Receipt Date: 20220616
  Transmission Date: 20220720
  Serious: Yes (Death, Life-Threatening, Hospitalization, Other)
  Sender: FDA-Public Use
  Company Number: US-GILEAD-2022-0584581

PATIENT
  Age: 50 Year
  Sex: Male

DRUGS (26)
  1. REMDESIVIR [Suspect]
     Active Substance: REMDESIVIR
     Indication: COVID-19
     Dosage: 100 MG, QD
     Route: 042
     Dates: start: 20220105, end: 20220106
  2. REMDESIVIR [Concomitant]
     Active Substance: REMDESIVIR
     Indication: COVID-19
     Dosage: RECEIVED 3 DOSES AS PART OF STANDARD CARE BEFORE STUDY ENROLLMENT.
  3. OXYGEN [Concomitant]
     Active Substance: OXYGEN
     Dosage: HIGH-FLOW NASAL CANNULA
  4. CEFTRIAXONE [Concomitant]
     Active Substance: CEFTRIAXONE
     Dosage: UNK
     Dates: start: 20220115, end: 20220120
  5. CEFEPIME [Concomitant]
     Active Substance: CEFEPIME HYDROCHLORIDE
     Dosage: UNK
     Dates: start: 20220115
  6. BARICITINIB [Concomitant]
     Active Substance: BARICITINIB
     Dosage: UNK
     Dates: start: 20220104, end: 20220117
  7. CISATRACURIUM [Concomitant]
     Active Substance: CISATRACURIUM
     Dosage: UNK
     Dates: start: 20220113, end: 20220202
  8. PETROLATUM [Concomitant]
     Active Substance: PETROLATUM
     Dosage: UNK
     Dates: start: 20220113, end: 20220202
  9. ASCORBIC ACID [Concomitant]
     Active Substance: ASCORBIC ACID
     Dosage: UNK
     Dates: start: 20220113, end: 20220131
  10. GUAIFENESIN [Concomitant]
     Active Substance: GUAIFENESIN
     Dosage: UNK
     Dates: start: 20220113, end: 20220131
  11. BUDESONIDE [Concomitant]
     Active Substance: BUDESONIDE
     Dosage: UNK
     Dates: start: 20220104, end: 20220131
  12. ENOXAPARIN [Concomitant]
     Active Substance: ENOXAPARIN
     Dosage: UNK
     Dates: start: 20220107, end: 20220115
  13. NOREPINEPHRINE [Concomitant]
     Active Substance: NOREPINEPHRINE
     Dosage: UNK
     Dates: start: 20220108, end: 20220131
  14. ACETAMINOPHEN [Concomitant]
     Active Substance: ACETAMINOPHEN
     Dosage: UNK
     Dates: start: 20220106, end: 20220203
  15. MIDAZOLAM [Concomitant]
     Active Substance: MIDAZOLAM
     Dosage: UNK
     Dates: start: 20220113, end: 20220202
  16. FENTANYL [Concomitant]
     Active Substance: FENTANYL
     Dosage: UNK
     Dates: start: 20220113, end: 20220202
  17. ACETAMINOPHEN\HYDROCODONE [Concomitant]
     Active Substance: ACETAMINOPHEN\HYDROCODONE
  18. ETOMIDATE [Concomitant]
     Active Substance: ETOMIDATE
     Dosage: UNK
     Dates: start: 20220113, end: 20220113
  19. VECURONIUM BROMIDE [Concomitant]
     Active Substance: VECURONIUM BROMIDE
     Dosage: UNK
     Dates: start: 20210202, end: 20220128
  20. ROBITUSSIN COLD [Concomitant]
     Dosage: UNK
     Dates: start: 20220106, end: 20220113
  21. ALBUTEROL SULFATE [Concomitant]
     Active Substance: ALBUTEROL SULFATE
  22. ASPIRIN [Concomitant]
     Active Substance: ASPIRIN
     Dosage: UNK
     Dates: start: 20220131, end: 20220202
  23. DEXAMETHASONE ACETATE [Concomitant]
     Active Substance: DEXAMETHASONE ACETATE
  24. EPINEPHRINE [Concomitant]
     Active Substance: EPINEPHRINE
     Dosage: UNK
     Dates: start: 20220202, end: 20220202
  25. HEPARIN [Concomitant]
     Active Substance: HEPARIN SODIUM
     Dosage: UNK
     Dates: start: 20220104, end: 20220203
  26. VANCOMYCIN [Concomitant]
     Active Substance: VANCOMYCIN
     Dosage: UNK
     Dates: start: 20220131, end: 20220202

REACTIONS (3)
  - Respiratory failure [Fatal]
  - Lower respiratory tract infection [Not Recovered/Not Resolved]
  - Acute kidney injury [Recovered/Resolved]

NARRATIVE: CASE EVENT DATE: 20220113
